FAERS Safety Report 4824048-8 (Version None)
Quarter: 2005Q4

REPORT INFORMATION
  Report Type: 
  Country: None (occurrence: None)
  Receive Date: 20051109
  Receipt Date: 20051014
  Transmission Date: 20060501
  Serious: Yes (Hospitalization, Other)
  Sender: FDA-Public Use
  Company Number: 200519275GDDC

PATIENT
  Age: 39 Year
  Sex: Female
  Weight: 82 kg

DRUGS (9)
  1. KETEK [Suspect]
     Indication: INFLUENZA
     Route: 048
     Dates: start: 20050920, end: 20050922
  2. KETEK [Suspect]
     Indication: BRONCHITIS
     Route: 048
     Dates: start: 20050920, end: 20050922
  3. CELESTAMINE TAB [Concomitant]
     Indication: BRONCHITIS
     Dosage: DOSE: UNK
     Route: 048
     Dates: start: 20050920, end: 20050922
  4. CELESTAMINE TAB [Concomitant]
     Indication: INFLUENZA
     Dosage: DOSE: UNK
     Route: 048
     Dates: start: 20050920, end: 20050922
  5. BISOLVON [Concomitant]
     Indication: BRONCHITIS
     Dosage: DOSE: UNK
     Route: 048
     Dates: start: 20050920, end: 20050922
  6. BISOLVON [Concomitant]
     Indication: INFLUENZA
     Dosage: DOSE: UNK
     Route: 048
     Dates: start: 20050920, end: 20050922
  7. FLIXOTIDE [Concomitant]
     Indication: BRONCHITIS
     Dates: start: 20050920
  8. FLIXOTIDE [Concomitant]
     Indication: INFLUENZA
     Dates: start: 20050920
  9. MYPRODOL [Concomitant]
     Dosage: DOSE: UNK
     Route: 048

REACTIONS (1)
  - THROMBOCYTOPENIA [None]
